FAERS Safety Report 9031892 (Version 1)
Quarter: 2013Q1

REPORT INFORMATION
  Report Type: Spontaneous
  Country: CA (occurrence: CA)
  Receive Date: 20130125
  Receipt Date: 20130125
  Transmission Date: 20140127
  Serious: Yes (Other)
  Sender: FDA-Public Use
  Company Number: CA-ELI_LILLY_AND_COMPANY-CA201301005218

PATIENT
  Age: 38 Year
  Sex: Male

DRUGS (5)
  1. FORTEO [Suspect]
     Indication: OSTEOPOROSIS
     Dosage: 20 UG, UNK
     Route: 058
     Dates: start: 20101222, end: 20130114
  2. VENTOLIN                                /SCH/ [Concomitant]
  3. THEOPHYLLINE [Concomitant]
  4. SINGULAIR [Concomitant]
  5. DEXAMETHASONE [Concomitant]

REACTIONS (3)
  - Fall [Not Recovered/Not Resolved]
  - Osteonecrosis [Not Recovered/Not Resolved]
  - Wound necrosis [Not Recovered/Not Resolved]
